FAERS Safety Report 8455971-3 (Version None)
Quarter: 2012Q2

REPORT INFORMATION
  Report Type: 
  Country: None (occurrence: None)
  Receive Date: 20120621
  Receipt Date: 20120618
  Transmission Date: 20120825
  Serious: Yes (Life-Threatening)
  Sender: FDA-Public Use
  Company Number: US-ROCHE-1056188

PATIENT
  Age: 58 Year
  Sex: Male

DRUGS (13)
  1. FLUOROURACIL [Suspect]
     Indication: RECTAL CANCER
     Route: 042
     Dates: start: 20080625, end: 20081205
  2. AVASTIN [Suspect]
     Indication: RECTAL CANCER
     Route: 042
     Dates: start: 20080625, end: 20081205
  3. HYDROCHLOROTHIAZIDE [Concomitant]
  4. ONDANSETRON [Concomitant]
  5. RAMIPRIL [Concomitant]
  6. OXALIPLATIN [Suspect]
     Indication: RECTAL CANCER
     Route: 067
     Dates: start: 20080625, end: 20081205
  7. PROCHLORPERAZINE [Concomitant]
  8. ALLOPURINOL [Concomitant]
  9. DEXAMETHASONE [Suspect]
     Indication: NAUSEA
     Dates: start: 20080716
  10. LEUCOVORIN CALCIUM [Suspect]
     Indication: RECTAL CANCER
     Route: 042
     Dates: start: 20080625, end: 20081205
  11. METFORMIN HCL [Concomitant]
  12. CRESTOR [Concomitant]
  13. ACETAMINOPHEN [Concomitant]

REACTIONS (1)
  - DEPRESSION [None]
